FAERS Safety Report 21590785 (Version 2)
Quarter: 2022Q4

REPORT INFORMATION
  Report Type: Spontaneous
  Country: ID (occurrence: ID)
  Receive Date: 20221114
  Receipt Date: 20221123
  Transmission Date: 20230113
  Serious: Yes (Hospitalization, Other)
  Sender: FDA-Public Use
  Company Number: ID-ELI_LILLY_AND_COMPANY-ID202210005173

PATIENT
  Age: 43 Year
  Sex: Female
  Weight: 66 kg

DRUGS (6)
  1. HUMALOG MIX75/25 [Suspect]
     Active Substance: INSULIN LISPRO
     Indication: Blood glucose increased
     Dosage: 16 U, TID
     Route: 065
  2. METFORMIN [Suspect]
     Active Substance: METFORMIN HYDROCHLORIDE
     Indication: Blood glucose increased
     Dosage: UNK UNK, EACH AFTERNOON
     Route: 065
  3. METFORMIN [Suspect]
     Active Substance: METFORMIN HYDROCHLORIDE
     Dosage: UNK UNK, EACH NIGHT
     Route: 065
  4. GLIMEPIRIDE [Suspect]
     Active Substance: GLIMEPIRIDE
     Indication: Blood glucose increased
     Dosage: 1 MG, EACH MORNING
     Route: 065
     Dates: end: 20221008
  5. LINAGLIPTIN [Suspect]
     Active Substance: LINAGLIPTIN
     Indication: Blood glucose increased
     Dosage: 5 MG, DAILY
     Route: 065
  6. EMPAGLIFLOZIN [Suspect]
     Active Substance: EMPAGLIFLOZIN
     Indication: Blood glucose increased
     Dosage: 25 MG, DAILY
     Route: 065

REACTIONS (20)
  - Blood glucose increased [Unknown]
  - Cyst [Unknown]
  - Pain in extremity [Unknown]
  - Mobility decreased [Unknown]
  - Blood glucose increased [Unknown]
  - Musculoskeletal stiffness [Unknown]
  - Nausea [Recovering/Resolving]
  - Appetite disorder [Unknown]
  - Dysgeusia [Unknown]
  - Dizziness [Unknown]
  - Pollakiuria [Unknown]
  - Dry mouth [Unknown]
  - Thirst [Unknown]
  - Abdominal distension [Unknown]
  - Product dose omission issue [Unknown]
  - Product dose omission issue [Unknown]
  - White blood cell count increased [Unknown]
  - Haemoglobin decreased [Unknown]
  - Vomiting [Unknown]
  - Chills [Unknown]

NARRATIVE: CASE EVENT DATE: 20220930
